FAERS Safety Report 5573609-X (Version None)
Quarter: 2007Q4

REPORT INFORMATION
  Report Type: 
  Country: None (occurrence: None)
  Receive Date: 20071226
  Receipt Date: 20071220
  Transmission Date: 20080405
  Serious: Yes (Hospitalization, Other)
  Sender: FDA-Public Use
  Company Number: US-AVENTIS-200718815US

PATIENT
  Age: 63 Year
  Sex: Male

DRUGS (10)
  1. LANTUS [Suspect]
     Route: 051
     Dates: start: 20060601
  2. METFORMIN HCL [Concomitant]
     Dosage: DOSE: UNK
  3. APIDRA [Concomitant]
     Dosage: DOSE: UNK
  4. FLUDROCORTISONE ACETATE [Concomitant]
     Dosage: DOSE: UNK
  5. FOSAMAX [Concomitant]
     Dosage: DOSE: UNK
  6. PREVACID [Concomitant]
     Dosage: DOSE: UNK
  7. LIPITOR [Concomitant]
     Dosage: DOSE: UNK
  8. VICODIN [Concomitant]
     Dosage: DOSE: UNK
  9. RESTORIL                           /00393701/ [Concomitant]
     Dosage: DOSE: UNK
  10. ASPIRIN [Concomitant]
     Dosage: DOSE: UNK

REACTIONS (8)
  - BLOOD GLUCOSE DECREASED [None]
  - BLOOD GLUCOSE INCREASED [None]
  - CARDIAC FAILURE CONGESTIVE [None]
  - HYPOGLYCAEMIA [None]
  - HYPOGLYCAEMIC UNCONSCIOUSNESS [None]
  - MYOCARDIAL INFARCTION [None]
  - ORTHOSTATIC HYPOTENSION [None]
  - TRANSIENT ISCHAEMIC ATTACK [None]
